FAERS Safety Report 18376851 (Version 1)
Quarter: 2020Q4

REPORT INFORMATION
  Report Type: Spontaneous
  Country: US (occurrence: US)
  Receive Date: 20201012
  Receipt Date: 20201012
  Transmission Date: 20210114
  Serious: No
  Sender: FDA-Public Use
  Company Number: None

PATIENT
  Age: 25 Year
  Sex: Female

DRUGS (20)
  1. HYDROXYZ PAM [Concomitant]
     Active Substance: HYDROXYZINE PAMOATE
  2. AMITRIPTYLIN [Concomitant]
     Active Substance: AMITRIPTYLINE
  3. PRAZOSIN. [Concomitant]
     Active Substance: PRAZOSIN
  4. COENZYME Q10 [Concomitant]
     Active Substance: DIETARY SUPPLEMENT\UBIDECARENONE
  5. ALPHA LIPOIC ACID [Concomitant]
     Active Substance: .ALPHA.-LIPOIC ACID
  6. ZETIA [Concomitant]
     Active Substance: EZETIMIBE
  7. CURCUMIN [Concomitant]
     Active Substance: CURCUMIN
  8. OMEPRAZOLE. [Concomitant]
     Active Substance: OMEPRAZOLE
  9. MELATONIN [Concomitant]
     Active Substance: MELATONIN
  10. LYRICA [Concomitant]
     Active Substance: PREGABALIN
  11. VITAMIN D3 [Concomitant]
     Active Substance: CHOLECALCIFEROL
  12. TUMERIC [Concomitant]
     Active Substance: HERBALS\TURMERIC
  13. CRANBERRY. [Concomitant]
     Active Substance: CRANBERRY
  14. NAPROXIN SODIUM [Concomitant]
  15. KLONOPIN [Concomitant]
     Active Substance: CLONAZEPAM
  16. METOPROLOL. [Concomitant]
     Active Substance: METOPROLOL
  17. SEROQUEL [Concomitant]
     Active Substance: QUETIAPINE FUMARATE
  18. IBUPROFEN. [Concomitant]
     Active Substance: IBUPROFEN
  19. DEPAKOTE [Concomitant]
     Active Substance: DIVALPROEX SODIUM
  20. BUPROPION. [Suspect]
     Active Substance: BUPROPION
     Indication: DEPRESSION
     Dosage: ?          QUANTITY:30 TABLET(S);?
     Route: 048

REACTIONS (1)
  - Seizure [None]

NARRATIVE: CASE EVENT DATE: 20200829
